FAERS Safety Report 6142842-0 (Version None)
Quarter: 2009Q2

REPORT INFORMATION
  Report Type: 
  Country: None (occurrence: None)
  Receive Date: 20090403
  Receipt Date: 20090225
  Transmission Date: 20091009
  Serious: Yes (Disabling)
  Sender: FDA-Public Use
  Company Number: AU-BRISTOL-MYERS SQUIBB COMPANY-14570188

PATIENT
  Age: 71 Year
  Sex: Female
  Weight: 62 kg

DRUGS (1)
  1. HYDREA [Suspect]
     Dosage: 2 TIMES
     Route: 048
     Dates: start: 20070309, end: 20070420

REACTIONS (6)
  - ANOREXIA [None]
  - ARTHRALGIA [None]
  - FATIGUE [None]
  - HEPATIC FUNCTION ABNORMAL [None]
  - MYALGIA [None]
  - PYREXIA [None]
